FAERS Safety Report 12978624 (Version 1)
Quarter: 2016Q4

REPORT INFORMATION
  Report Type: Spontaneous
  Country: GB (occurrence: GB)
  Receive Date: 20161128
  Receipt Date: 20161128
  Transmission Date: 20170207
  Serious: Yes (Life-Threatening, Other)
  Sender: FDA-Public Use
  Company Number: GB-PFIZER INC-2016542527

PATIENT
  Age: 64 Year
  Sex: Male
  Weight: 106 kg

DRUGS (9)
  1. TRANEXAMIC ACID. [Suspect]
     Active Substance: TRANEXAMIC ACID
     Indication: KNEE ARTHROPLASTY
     Dosage: 1 G, UNK
     Route: 042
     Dates: start: 20161025, end: 20161025
  2. TEICOPLANIN [Suspect]
     Active Substance: TEICOPLANIN
     Indication: KNEE ARTHROPLASTY
     Route: 042
     Dates: start: 20161025, end: 20161025
  3. PROPOFOL. [Suspect]
     Active Substance: PROPOFOL
     Indication: KNEE ARTHROPLASTY
     Route: 042
     Dates: start: 20161025, end: 20161025
  4. DEXAMETHASONE SODIUM PHOSPHATE. [Suspect]
     Active Substance: DEXAMETHASONE SODIUM PHOSPHATE
     Indication: KNEE ARTHROPLASTY
     Route: 042
     Dates: start: 20161025, end: 20161025
  5. PARECOXIB SODIUM. [Suspect]
     Active Substance: PARECOXIB SODIUM
     Indication: KNEE ARTHROPLASTY
     Route: 042
     Dates: start: 20161025, end: 20161025
  6. SEVOFLURANE. [Suspect]
     Active Substance: SEVOFLURANE
     Indication: KNEE ARTHROPLASTY
     Route: 055
     Dates: start: 20161025, end: 20161025
  7. GENTAMICIN SULFATE. [Suspect]
     Active Substance: GENTAMICIN SULFATE
     Indication: KNEE ARTHROPLASTY
     Route: 042
     Dates: start: 20161025, end: 20161025
  8. FENTANYL. [Suspect]
     Active Substance: FENTANYL
     Indication: KNEE ARTHROPLASTY
     Route: 042
     Dates: start: 20161025, end: 20161025
  9. LEVOBUPIVACAINE [Suspect]
     Active Substance: LEVOBUPIVACAINE
     Indication: KNEE ARTHROPLASTY
     Route: 058
     Dates: start: 20161025, end: 20161025

REACTIONS (2)
  - Hypotension [Recovered/Resolved]
  - Anaphylactic reaction [Recovered/Resolved]

NARRATIVE: CASE EVENT DATE: 20161025
